FAERS Safety Report 9859510 (Version 1)
Quarter: 2014Q1

REPORT INFORMATION
  Report Type: Spontaneous
  Country: US (occurrence: US)
  Receive Date: 20140131
  Receipt Date: 20140131
  Transmission Date: 20141002
  Serious: No
  Sender: FDA-Public Use
  Company Number: US-009507513-1401USA007528

PATIENT
  Age: 30 Year
  Sex: Female

DRUGS (2)
  1. CLARITIN-D-24 [Suspect]
     Indication: SINUS DISORDER
     Dosage: 10 MG, ONCE
     Route: 048
     Dates: start: 20131230
  2. CLARITIN-D-24 [Suspect]
     Indication: SEASONAL ALLERGY

REACTIONS (3)
  - Syncope [Unknown]
  - Abnormal dreams [Unknown]
  - Tremor [Unknown]
